FAERS Safety Report 5246580-8 (Version None)
Quarter: 2007Q1

REPORT INFORMATION
  Report Type: 
  Country: None (occurrence: None)
  Receive Date: 20070226
  Receipt Date: 20070214
  Transmission Date: 20070707
  Serious: Yes (Hospitalization)
  Sender: FDA-Public Use
  Company Number: 2007CG00274

PATIENT
  Age: 45 Year
  Sex: Female
  Weight: 60 kg

DRUGS (12)
  1. NEXIUM [Suspect]
     Route: 048
  2. BELUSTINE [Suspect]
     Indication: OLIGODENDROGLIOMA
     Route: 042
     Dates: start: 20060519
  3. NATULAN [Suspect]
     Indication: OLIGODENDROGLIOMA
     Route: 042
     Dates: start: 20060519
  4. ONCOVIN [Suspect]
     Indication: OLIGODENDROGLIOMA
     Route: 042
     Dates: start: 20060519
  5. DEPAKENE [Concomitant]
     Indication: EPILEPSY
     Route: 048
     Dates: start: 20060814
  6. SOLUPRED [Concomitant]
     Indication: OLIGODENDROGLIOMA
     Route: 048
  7. BACTRIM [Concomitant]
     Indication: PNEUMOCYSTIS JIROVECI INFECTION
     Route: 042
     Dates: start: 20060801, end: 20060901
  8. TARDYFERON [Concomitant]
     Dates: start: 20060401, end: 20061201
  9. SPECIAFOLDINE [Concomitant]
     Dates: start: 20060401, end: 20061201
  10. DUPHALAC [Concomitant]
     Dates: start: 20060401
  11. LOVENOX [Concomitant]
     Dates: start: 20060901
  12. RADIOTHERAPY [Concomitant]
     Indication: OLIGODENDROGLIOMA
     Dosage: 1.8 GRAYS PER SESSION, TOTAL DOSE 60.4 GRAYS
     Dates: start: 20060519, end: 20061101

REACTIONS (2)
  - LYMPHOPENIA [None]
  - NEUTROPENIA [None]
